FAERS Safety Report 8140589-2 (Version None)
Quarter: 2012Q1

REPORT INFORMATION
  Report Type: 
  Country: None (occurrence: None)
  Receive Date: 20120216
  Receipt Date: 20120210
  Transmission Date: 20120608
  Serious: Yes (Death)
  Sender: FDA-Public Use
  Company Number: US-CELGENEUS-163-21880-12021298

PATIENT
  Sex: Male
  Weight: 74.411 kg

DRUGS (1)
  1. REVLIMID [Suspect]
     Indication: NON-HODGKIN'S LYMPHOMA
     Dosage: 5 MILLIGRAM
     Route: 048
     Dates: start: 20120120, end: 20120124

REACTIONS (1)
  - NON-HODGKIN'S LYMPHOMA [None]
